FAERS Safety Report 4701500-7 (Version None)
Quarter: 2005Q2

REPORT INFORMATION
  Report Type: 
  Country: None (occurrence: None)
  Receive Date: 20050627
  Receipt Date: 20050613
  Transmission Date: 20051028
  Serious: No
  Sender: FDA-Public Use
  Company Number: 11467

PATIENT

DRUGS (1)
  1. METHOTREXATE [Suspect]
     Indication: B-CELL LYMPHOMA

REACTIONS (4)
  - DRUG CLEARANCE DECREASED [None]
  - DUBIN-JOHNSON SYNDROME [None]
  - NEPHROPATHY TOXIC [None]
  - OVERDOSE [None]
